FAERS Safety Report 9247469 (Version 1)
Quarter: 2013Q2

REPORT INFORMATION
  Report Type: Spontaneous
  Country: US (occurrence: US)
  Receive Date: 20130423
  Receipt Date: 20130423
  Transmission Date: 20140414
  Serious: No
  Sender: FDA-Public Use
  Company Number: US-BAYER-2013-050002

PATIENT
  Age: 27 Year
  Sex: Female
  Weight: 118 kg

DRUGS (9)
  1. BETASERON [Suspect]
     Dosage: 0.25 ML, QOD
     Route: 058
  2. BETASERON [Suspect]
     Dosage: 0.5 ML, QOD
  3. BETASERON [Suspect]
     Dosage: 0.75 ML, QOD
  4. BETASERON [Suspect]
     Dosage: 1 ML, QOD
  5. XYZAL [Concomitant]
     Dosage: 5 MG, UNK
  6. MIRCETTE [Concomitant]
     Dosage: 28 DAY
  7. ALLEGRA [Concomitant]
     Dosage: 30 MG, UNK
  8. DEXILANT [Concomitant]
     Dosage: 60 MG, DR
  9. LAMOTRIGINE [Concomitant]
     Dosage: 150 MG, UNK

REACTIONS (3)
  - Injection site pain [Unknown]
  - Injection site erythema [Unknown]
  - Injection site discolouration [Unknown]
